FAERS Safety Report 7744237-2 (Version None)
Quarter: 2011Q3

REPORT INFORMATION
  Report Type: 
  Country: None (occurrence: None)
  Receive Date: 20110908
  Receipt Date: 20110825
  Transmission Date: 20111222
  Serious: Yes (Other)
  Sender: FDA-Public Use
  Company Number: TPA2011A05241

PATIENT
  Age: 72 Year
  Sex: Male

DRUGS (4)
  1. METFORMIN HCL [Concomitant]
  2. ACTOS [Suspect]
     Indication: TYPE 2 DIABETES MELLITUS
     Dosage: 30 MG, 1 IN 1 D, PER ORAL
     Route: 048
     Dates: start: 20080101, end: 20110101
  3. LISINOPRIL [Concomitant]
  4. UNKNOWN STATIN (NYSTATIN) [Concomitant]

REACTIONS (2)
  - BLADDER CANCER [None]
  - CEREBROVASCULAR ACCIDENT [None]
